FAERS Safety Report 17282948 (Version 3)
Quarter: 2021Q2

REPORT INFORMATION
  Report Type: Spontaneous
  Country: US (occurrence: US)
  Receive Date: 20200117
  Receipt Date: 20210624
  Transmission Date: 20210716
  Serious: Yes (Hospitalization, Other)
  Sender: FDA-Public Use
  Company Number: US-GILEAD-2020-0447077

PATIENT
  Age: 47 Year
  Sex: Male
  Weight: 77.1 kg

DRUGS (34)
  1. AMITRIPTYLINE [Concomitant]
     Active Substance: AMITRIPTYLINE
  2. LORATADINE. [Concomitant]
     Active Substance: LORATADINE
  3. ALBUTEROL [SALBUTAMOL] [Concomitant]
     Active Substance: ALBUTEROL
  4. NITROSTAT [Concomitant]
     Active Substance: NITROGLYCERIN
  5. VIREAD [Suspect]
     Active Substance: TENOFOVIR DISOPROXIL FUMARATE
     Dosage: UNK
     Route: 065
     Dates: start: 20060825, end: 201104
  6. BACTRIM [Concomitant]
     Active Substance: SULFAMETHOXAZOLE\TRIMETHOPRIM
  7. TRIAMTERENE HCTZ [Concomitant]
     Active Substance: HYDROCHLOROTHIAZIDE\TRIAMTERENE
  8. CRIXIVAN [Concomitant]
     Active Substance: INDINAVIR SULFATE
  9. PSEUDOEPHEDRINE. [Concomitant]
     Active Substance: PSEUDOEPHEDRINE HYDROCHLORIDE
  10. TRUVADA [Suspect]
     Active Substance: EMTRICITABINE\TENOFOVIR DISOPROXIL FUMARATE
     Dosage: UNK
     Route: 065
     Dates: start: 20061215, end: 200808
  11. ZERIT [Concomitant]
     Active Substance: STAVUDINE
  12. NITROFURANTOIN MACROCRYSTALS [Concomitant]
     Active Substance: NITROFURANTOIN
  13. OXYCODONE [Concomitant]
     Active Substance: OXYCODONE
  14. DARAPRIM [Concomitant]
     Active Substance: PYRIMETHAMINE
  15. TEMAZEPAM. [Concomitant]
     Active Substance: TEMAZEPAM
  16. HYDROCODONE/ACETAMINOPHEN [Concomitant]
     Active Substance: ACETAMINOPHEN\HYDROCODONE
  17. NAPROXEN. [Concomitant]
     Active Substance: NAPROXEN
  18. CEFTAZIDIME. [Concomitant]
     Active Substance: CEFTAZIDIME
  19. TRIMETHOPRIM. [Concomitant]
     Active Substance: TRIMETHOPRIM
  20. PROMETHAZINE [Concomitant]
     Active Substance: PROMETHAZINE HYDROCHLORIDE
  21. CYCLOBENZAPRINE. [Concomitant]
     Active Substance: CYCLOBENZAPRINE
  22. K?TAB [Concomitant]
     Active Substance: POTASSIUM CHLORIDE
  23. TRUVADA [Suspect]
     Active Substance: EMTRICITABINE\TENOFOVIR DISOPROXIL FUMARATE
     Indication: HIV INFECTION
     Dosage: UNK
     Route: 048
     Dates: start: 2004, end: 2017
  24. KALETRA [Concomitant]
     Active Substance: LOPINAVIR\RITONAVIR
  25. NORTRIPTYLINE [Concomitant]
     Active Substance: NORTRIPTYLINE
  26. ATORVASTATIN [Concomitant]
     Active Substance: ATORVASTATIN
  27. AGENERASE [Concomitant]
     Active Substance: AMPRENAVIR
  28. CEPHALEXIN HCL [Concomitant]
     Active Substance: CEPHALEXIN HYDROCHLORIDE
  29. AMBIEN [Concomitant]
     Active Substance: ZOLPIDEM TARTRATE
  30. VIREAD [Suspect]
     Active Substance: TENOFOVIR DISOPROXIL FUMARATE
     Indication: HIV INFECTION
     Dosage: UNK
     Route: 048
     Dates: start: 200608, end: 201105
  31. KLONOPIN [Concomitant]
     Active Substance: CLONAZEPAM
  32. OMEPRAZOLE. [Concomitant]
     Active Substance: OMEPRAZOLE
  33. MARINOL [ALLOPURINOL] [Concomitant]
     Active Substance: ALLOPURINOL
  34. AZITHROMYCIN ANHYDROUS. [Concomitant]
     Active Substance: AZITHROMYCIN ANHYDROUS

REACTIONS (12)
  - Pain [Not Recovered/Not Resolved]
  - Anxiety [Not Recovered/Not Resolved]
  - Chronic kidney disease [Not Recovered/Not Resolved]
  - Depression [Not Recovered/Not Resolved]
  - Renal failure [Unknown]
  - Anhedonia [Unknown]
  - End stage renal disease [Not Recovered/Not Resolved]
  - Renal impairment [Unknown]
  - Tooth loss [Recovered/Resolved]
  - Emotional distress [Not Recovered/Not Resolved]
  - Vitamin D deficiency [Not Recovered/Not Resolved]
  - Bone density decreased [Unknown]

NARRATIVE: CASE EVENT DATE: 20060629
